FAERS Safety Report 6703775-1 (Version None)
Quarter: 2010Q2

REPORT INFORMATION
  Report Type: 
  Country: None (occurrence: None)
  Receive Date: 20100430
  Receipt Date: 20100421
  Transmission Date: 20101027
  Serious: Yes (Hospitalization)
  Sender: FDA-Public Use
  Company Number: TR-ELI_LILLY_AND_COMPANY-TR201004006551

PATIENT

DRUGS (5)
  1. HUMULIN R [Suspect]
     Dosage: 6 U, EACH MORNING
     Route: 064
     Dates: end: 20100222
  2. HUMULIN R [Suspect]
     Dosage: 4 U, NOON
     Route: 064
     Dates: end: 20100222
  3. HUMULIN R [Suspect]
     Dosage: 4 U, EACH EVENING
     Route: 064
     Dates: end: 20100222
  4. ELEVIT [Concomitant]
     Dosage: UNK UNK, 2/D
     Route: 064
     Dates: start: 20090701, end: 20100222
  5. MALTOFER [Concomitant]
     Dosage: UNK UNK, DAILY (1/D)
     Route: 064
     Dates: start: 20090701, end: 20100222

REACTIONS (4)
  - BLOOD GLUCOSE ABNORMAL [None]
  - DRUG EXPOSURE DURING PREGNANCY [None]
  - JAUNDICE NEONATAL [None]
  - NEONATAL INFECTION [None]
